FAERS Safety Report 6078788-6 (Version None)
Quarter: 2009Q1

REPORT INFORMATION
  Report Type: 
  Country: None (occurrence: None)
  Receive Date: 20090216
  Receipt Date: 20090210
  Transmission Date: 20090719
  Serious: Yes (Other)
  Sender: FDA-Public Use
  Company Number: AT-BAYER-200832596GPV

PATIENT

DRUGS (1)
  1. ALEMTUZUMAB [Suspect]
     Indication: B-CELL SMALL LYMPHOCYTIC LYMPHOMA RECURRENT
     Route: 065

REACTIONS (1)
  - BLADDER CANCER [None]
